FAERS Safety Report 4620362-X (Version None)
Quarter: 2005Q1

REPORT INFORMATION
  Report Type: 
  Country: None (occurrence: None)
  Receive Date: 20050324
  Receipt Date: 20050314
  Transmission Date: 20050727
  Serious: Yes (Disabling)
  Sender: FDA-Public Use
  Company Number: HQ1344115MAR2002

PATIENT
  Sex: Female

DRUGS (3)
  1. DIMETAPP [Suspect]
     Dosage: ORAL
     Route: 048
     Dates: start: 19900508
  2. ALKA-SELTZER PLUS (ACETYLSALICYLIC ACID/DIPHENHYDRAMINE CITRATE/PHENYL [Suspect]
     Dates: start: 19900508
  3. DRISTAN [Suspect]
     Dates: start: 19900508

REACTIONS (1)
  - MYOCARDIAL INFARCTION [None]
